FAERS Safety Report 4437115-8 (Version None)
Quarter: 2004Q3

REPORT INFORMATION
  Report Type: 
  Country: None (occurrence: None)
  Receive Date: 20040827
  Receipt Date: 20040818
  Transmission Date: 20050211
  Serious: Yes (Death)
  Sender: FDA-Public Use
  Company Number: 2004058040

PATIENT
  Age: 41 Year
  Sex: Male

DRUGS (3)
  1. NEURONTIN [Suspect]
     Indication: ANXIETY
  2. NEURONTIN [Suspect]
     Indication: BIPOLAR DISORDER
  3. NEURONTIN [Suspect]
     Indication: DEPRESSION

REACTIONS (3)
  - COMPLETED SUICIDE [None]
  - DRUG INEFFECTIVE [None]
  - INJURY [None]
